FAERS Safety Report 9477796 (Version 2)
Quarter: 2013Q3

REPORT INFORMATION
  Report Type: Report from Study
  Country: IL (occurrence: IL)
  Receive Date: 20130827
  Receipt Date: 20130827
  Transmission Date: 20140515
  Serious: Yes (Other)
  Sender: FDA-Public Use
  Company Number: IL-BRISTOL-MYERS SQUIBB COMPANY-15417199

PATIENT
  Age: 44 Year
  Sex: Male

DRUGS (2)
  1. APIXABAN [Suspect]
     Indication: EMBOLISM
     Dosage: 1DF: 10-20MG
     Route: 048
     Dates: start: 20101118, end: 20101127
  2. PLACEBO [Suspect]
     Indication: EMBOLISM
     Dosage: SC WITH ENOXAPARIN 18NOV10-28NOV10?ORAL WITH APIX/WARFARIN 18NOV10-27NOV10
     Dates: start: 20101118, end: 20101128

REACTIONS (1)
  - Dermatitis allergic [Recovered/Resolved]
